FAERS Safety Report 25845475 (Version 1)
Quarter: 2025Q3

REPORT INFORMATION
  Report Type: Spontaneous
  Country: EU (occurrence: EU)
  Receive Date: 20250925
  Receipt Date: 20250925
  Transmission Date: 20251020
  Serious: Yes (Disabling, Other)
  Sender: GLAXOSMITHKLINE
  Company Number: None

PATIENT
  Age: 79 Year
  Sex: Female
  Weight: 48 kg

DRUGS (6)
  1. LAMOTRIGINE [Suspect]
     Active Substance: LAMOTRIGINE
     Indication: Epilepsy
     Route: 065
  2. KEPPRA [Suspect]
     Active Substance: LEVETIRACETAM
     Indication: Epilepsy
     Dosage: 1000 MG, QD (500 MILLIGRAM, 2X/DAY (BID))
  3. REPATHA [Concomitant]
     Active Substance: EVOLOCUMAB
     Indication: Product used for unknown indication
  4. PLAVIX [Concomitant]
     Active Substance: CLOPIDOGREL BISULFATE
     Indication: Product used for unknown indication
  5. METOPROLOL SUCCINATE [Concomitant]
     Active Substance: METOPROLOL SUCCINATE
     Indication: Product used for unknown indication
  6. CANDESARTAN [Concomitant]
     Active Substance: CANDESARTAN
     Indication: Product used for unknown indication

REACTIONS (6)
  - Pancreatitis chronic [Not Recovered/Not Resolved]
  - Pancreatic atrophy [Not Recovered/Not Resolved]
  - Faecal elastase concentration decreased [Not Recovered/Not Resolved]
  - Amylase abnormal [Not Recovered/Not Resolved]
  - Pancreatic cyst [Not Recovered/Not Resolved]
  - Skin reaction [Unknown]
